FAERS Safety Report 4413416-4 (Version None)
Quarter: 2004Q2

REPORT INFORMATION
  Report Type: 
  Country: None (occurrence: None)
  Receive Date: 20040630
  Receipt Date: 20040305
  Transmission Date: 20050107
  Serious: No
  Sender: FDA-Public Use
  Company Number: 04P-163-0252371-00

PATIENT
  Age: 44 Year
  Sex: Female
  Weight: 68.0396 kg

DRUGS (7)
  1. HUMIRA [Suspect]
     Indication: RHEUMATOID ARTHRITIS
     Dosage: 40 MG, 1 IN 2 WK, SUBCUTANEOUS
     Route: 058
     Dates: start: 20040123
  2. CLARINEX [Concomitant]
  3. METHOTREXATE SODIUM [Concomitant]
  4. HYDROXYCHLORQUINE PHOSPHATE [Concomitant]
  5. NAPROXEN [Concomitant]
  6. LEVOTHYROXINE SODIUM [Concomitant]
  7. CYCLESSA [Concomitant]

REACTIONS (1)
  - SINUSITIS [None]
